FAERS Safety Report 5069432-5 (Version None)
Quarter: 2006Q3

REPORT INFORMATION
  Report Type: 
  Country: None (occurrence: None)
  Receive Date: 20060714
  Receipt Date: 20060419
  Transmission Date: 20061208
  Serious: No
  Sender: FDA-Public Use
  Company Number: 2006SP001748

PATIENT
  Age: 78 Year
  Sex: Female
  Weight: 57.6068 kg

DRUGS (4)
  1. LUNESTA [Suspect]
     Indication: INSOMNIA
     Dosage: 3 MG;HS;ORAL
     Route: 048
     Dates: start: 20060401
  2. AMBIEN [Concomitant]
  3. ATORVASTATIN CALCIUM [Concomitant]
  4. ZIAC [Concomitant]

REACTIONS (4)
  - DRUG INEFFECTIVE [None]
  - DRY MOUTH [None]
  - DYSGEUSIA [None]
  - MIDDLE INSOMNIA [None]
